FAERS Safety Report 25106313 (Version 3)
Quarter: 2025Q4

REPORT INFORMATION
  Report Type: Spontaneous
  Country: EU (occurrence: EU)
  Receive Date: 20250321
  Receipt Date: 20251205
  Transmission Date: 20260118
  Serious: No
  Sender: SANDOZ
  Company Number: EU-SANDOZ-SDZ2025IT017407

PATIENT
  Age: 40 Year
  Sex: Female

DRUGS (1)
  1. OMNITROPE [Suspect]
     Active Substance: SOMATROPIN
     Indication: Product used for unknown indication
     Dosage: UNK
     Route: 065

REACTIONS (1)
  - Drug dose omission by device [Unknown]
